FAERS Safety Report 21536293 (Version 1)
Quarter: 2022Q4

REPORT INFORMATION
  Report Type: Spontaneous
  Country: CN (occurrence: CN)
  Receive Date: 20221101
  Receipt Date: 20221101
  Transmission Date: 20230113
  Serious: Yes (Other)
  Sender: FDA-Public Use
  Company Number: CN-BAYER-2022A151887

PATIENT
  Age: 68 Year
  Sex: Female
  Weight: 63 kg

DRUGS (1)
  1. AVELOX [Suspect]
     Active Substance: MOXIFLOXACIN HYDROCHLORIDE
     Indication: Cholecystitis acute
     Dosage: 0.4 G, QD
     Route: 048
     Dates: start: 20221012, end: 20221012

REACTIONS (3)
  - Tremor [Recovered/Resolved]
  - Aphasia [Recovered/Resolved]
  - Off label use [None]

NARRATIVE: CASE EVENT DATE: 20221012
